FAERS Safety Report 4386944-8 (Version None)
Quarter: 2004Q2

REPORT INFORMATION
  Report Type: 
  Country: None (occurrence: None)
  Receive Date: 20040623
  Receipt Date: 20040614
  Transmission Date: 20050107
  Serious: Yes (Other)
  Sender: FDA-Public Use
  Company Number: 200403420

PATIENT
  Age: 71 Year
  Sex: Female

DRUGS (6)
  1. RESTASIS [Suspect]
     Indication: CORNEAL EROSION
     Dosage: 2 DROP BID EYE
     Dates: start: 20040429, end: 20040504
  2. RESTASIS [Suspect]
     Indication: KERATITIS
     Dosage: 2 DROP BID EYE
     Dates: start: 20040429, end: 20040504
  3. RESTASIS [Suspect]
     Indication: KERATOCONJUNCTIVITIS SICCA
     Dosage: 2 DROP BID EYE
     Dates: start: 20040429, end: 20040504
  4. TOBRADEX [Suspect]
     Indication: CORNEAL EROSION
     Dates: start: 20040416
  5. TOBRADEX [Suspect]
     Indication: KERATITIS
     Dates: start: 20040416
  6. TOBRADEX [Suspect]
     Indication: KERATOCONJUNCTIVITIS SICCA
     Dates: start: 20040416

REACTIONS (5)
  - CORNEAL EROSION [None]
  - DRUG INTERACTION [None]
  - EYE IRRITATION [None]
  - SKIN DESQUAMATION [None]
  - VISION BLURRED [None]
